FAERS Safety Report 9320937 (Version 2)
Quarter: 2013Q3

REPORT INFORMATION
  Report Type: Spontaneous
  Country: US (occurrence: US)
  Receive Date: 20130531
  Receipt Date: 20130712
  Transmission Date: 20140515
  Serious: No
  Sender: FDA-Public Use
  Company Number: US-009507513-1305USA008269

PATIENT
  Sex: Male

DRUGS (5)
  1. SAPHRIS [Suspect]
     Indication: SCHIZOPHRENIA
     Dosage: 5 MG, BID
     Route: 060
     Dates: start: 20130115, end: 20130409
  2. SAPHRIS [Suspect]
     Indication: PSYCHOTIC DISORDER
  3. HALDOL [Concomitant]
     Indication: PSYCHOTIC DISORDER
     Dosage: UNK
     Route: 048
     Dates: start: 20111221
  4. KLONOPIN [Concomitant]
     Indication: ANXIETY
     Dosage: 3
     Route: 048
     Dates: start: 20100801
  5. LAMICTAL [Concomitant]
     Indication: MOOD ALTERED
     Dosage: 250
     Route: 048
     Dates: start: 20120710

REACTIONS (5)
  - Hallucination [Recovering/Resolving]
  - Delusion [Recovering/Resolving]
  - Paranoia [Not Recovered/Not Resolved]
  - Hallucination, auditory [Not Recovered/Not Resolved]
  - Psychotic disorder [Not Recovered/Not Resolved]
